FAERS Safety Report 17600239 (Version 1)
Quarter: 2020Q1

REPORT INFORMATION
  Report Type: Spontaneous
  Country: CZ (occurrence: CZ)
  Receive Date: 20200330
  Receipt Date: 20200330
  Transmission Date: 20200409
  Serious: Yes (Other)
  Sender: FDA-Public Use
  Company Number: PHHY2019CZ136357

PATIENT
  Sex: Male

DRUGS (8)
  1. 5-FLUOROURACIL [Suspect]
     Active Substance: FLUOROURACIL
     Indication: COLORECTAL CANCER METASTATIC
     Dosage: UNK
     Route: 065
     Dates: start: 201502
  2. BEVACIZUMAB. [Suspect]
     Active Substance: BEVACIZUMAB
     Indication: COLORECTAL CANCER METASTATIC
     Dosage: UNK
     Route: 065
     Dates: start: 201502
  3. REGORAFENIB. [Suspect]
     Active Substance: REGORAFENIB
     Indication: COLORECTAL CANCER METASTATIC
     Dosage: UNK
     Route: 065
  4. TRIFLURIDINE. [Suspect]
     Active Substance: TRIFLURIDINE
     Dosage: 2X 50MG
     Route: 065
  5. IRINOTECAN [Suspect]
     Active Substance: IRINOTECAN
     Indication: COLORECTAL CANCER METASTATIC
     Dosage: UNK
     Route: 065
     Dates: start: 201502
  6. TRIFLURIDINE. [Suspect]
     Active Substance: TRIFLURIDINE
     Indication: COLORECTAL CANCER METASTATIC
     Dosage: (2X 70MG)
     Route: 065
     Dates: start: 201806
  7. TRIFLURIDINE. [Suspect]
     Active Substance: TRIFLURIDINE
     Dosage: 2X 40MG
     Route: 065
  8. FOLINIC ACID [Suspect]
     Active Substance: LEUCOVORIN
     Indication: COLORECTAL CANCER METASTATIC
     Dosage: UNK
     Route: 065
     Dates: start: 201502

REACTIONS (7)
  - Colorectal cancer metastatic [Unknown]
  - Toxicity to various agents [Unknown]
  - Product use in unapproved indication [Unknown]
  - Nephrotic syndrome [Unknown]
  - Metastases to liver [Not Recovered/Not Resolved]
  - Malignant neoplasm progression [Not Recovered/Not Resolved]
  - Neutropenia [Recovering/Resolving]

NARRATIVE: CASE EVENT DATE: 201801
